FAERS Safety Report 7180722-2 (Version None)
Quarter: 2010Q4

REPORT INFORMATION
  Report Type: 
  Country: None (occurrence: None)
  Receive Date: 20101221
  Receipt Date: 20101214
  Transmission Date: 20110411
  Serious: Yes (Hospitalization)
  Sender: FDA-Public Use
  Company Number: BR-ABBOTT-10P-020-0691453-00

PATIENT
  Sex: Female
  Weight: 95 kg

DRUGS (3)
  1. HUMIRA [Suspect]
     Indication: RHEUMATOID ARTHRITIS
     Route: 058
     Dates: start: 20100726
  2. ALPRAZOLAM [Concomitant]
     Indication: INSOMNIA
     Route: 048
     Dates: start: 20080101
  3. LIVIAL [Concomitant]
     Indication: MENOPAUSE
     Route: 048
     Dates: start: 20020101

REACTIONS (7)
  - ABDOMINAL PAIN LOWER [None]
  - HAEMATOMA [None]
  - JOINT SWELLING [None]
  - OVARIAN CYST [None]
  - OVARIAN ENLARGEMENT [None]
  - THROMBOSIS [None]
  - VAGINAL HAEMORRHAGE [None]
